FAERS Safety Report 18213125 (Version 1)
Quarter: 2020Q3

REPORT INFORMATION
  Report Type: Spontaneous
  Country: US (occurrence: US)
  Receive Date: 20200830
  Receipt Date: 20200830
  Transmission Date: 20201103
  Serious: Yes (Hospitalization)
  Sender: FDA-Public Use
  Company Number: None

PATIENT
  Age: 50 Year
  Sex: Male
  Weight: 149.85 kg

DRUGS (9)
  1. METOPROLOL. [Concomitant]
     Active Substance: METOPROLOL
  2. VASCEPA [Suspect]
     Active Substance: ICOSAPENT ETHYL
     Dosage: ?          QUANTITY:2 CAPSULE(S);?
     Route: 048
     Dates: start: 20200706, end: 20200725
  3. ASPIRIN. [Concomitant]
     Active Substance: ASPIRIN
  4. DEXIDENT [Concomitant]
  5. COENZYME Q10 [Concomitant]
     Active Substance: DIETARY SUPPLEMENT\UBIDECARENONE
  6. LOSARTAN. [Concomitant]
     Active Substance: LOSARTAN
  7. BRILINTA [Concomitant]
     Active Substance: TICAGRELOR
  8. CRESTOR [Concomitant]
     Active Substance: ROSUVASTATIN CALCIUM
  9. STENTS [Concomitant]

REACTIONS (3)
  - Chest pain [None]
  - Dyspnoea [None]
  - Haemorrhage [None]

NARRATIVE: CASE EVENT DATE: 20200725
